FAERS Safety Report 18722929 (Version 1)
Quarter: 2021Q1

REPORT INFORMATION
  Report Type: Report from Study
  Country: HN (occurrence: HN)
  Receive Date: 20210111
  Receipt Date: 20210111
  Transmission Date: 20210419
  Serious: Yes (Other)
  Sender: FDA-Public Use
  Company Number: NVSC2021HN003145

PATIENT
  Age: 62 Year
  Sex: Female

DRUGS (1)
  1. GALVUS MET [Suspect]
     Active Substance: METFORMIN HYDROCHLORIDE\VILDAGLIPTIN
     Indication: PRODUCT USED FOR UNKNOWN INDICATION
     Dosage: 50/500 MG
     Route: 065

REACTIONS (5)
  - Cerebrovascular accident [Unknown]
  - Limb discomfort [Unknown]
  - Malaise [Unknown]
  - Decreased activity [Unknown]
  - Movement disorder [Unknown]
